APPROVED DRUG PRODUCT: NAPROXEN SODIUM AND PSEUDOEPHEDRINE HYDROCHLORIDE
Active Ingredient: NAPROXEN SODIUM; PSEUDOEPHEDRINE HYDROCHLORIDE
Strength: 220MG;120MG
Dosage Form/Route: TABLET, EXTENDED RELEASE;ORAL
Application: A077381 | Product #001
Applicant: DR REDDYS LABORATORIES INC
Approved: Sep 27, 2006 | RLD: No | RS: No | Type: OTC